FAERS Safety Report 4472898-2 (Version None)
Quarter: 2004Q4

REPORT INFORMATION
  Report Type: 
  Country: None (occurrence: None)
  Receive Date: 20041012
  Receipt Date: 20041012
  Transmission Date: 20050328
  Serious: No
  Sender: FDA-Public Use
  Company Number: None

PATIENT
  Age: 18 Year
  Sex: Female

DRUGS (1)
  1. ACETADOTE [Suspect]
     Indication: OVERDOSE
     Dosage: INTRAVENOU
     Route: 042
     Dates: start: 20041006, end: 20041007

REACTIONS (4)
  - BRONCHOSPASM [None]
  - PRURITUS [None]
  - RASH [None]
  - RESPIRATORY DISTRESS [None]
